FAERS Safety Report 6660348-7 (Version None)
Quarter: 2010Q1

REPORT INFORMATION
  Report Type: 
  Country: None (occurrence: None)
  Receive Date: 20100331
  Receipt Date: 20091218
  Transmission Date: 20100710
  Serious: Yes (Hospitalization, Other)
  Sender: FDA-Public Use
  Company Number: JP-JNJFOC-20090802377

PATIENT
  Sex: Female

DRUGS (9)
  1. CRAVIT [Suspect]
     Indication: CYSTITIS
     Route: 048
  2. CRAVIT [Suspect]
     Route: 048
  3. LOXONIN [Suspect]
     Indication: CYSTITIS
     Route: 048
  4. VICCILIN [Suspect]
     Indication: CYSTITIS
     Route: 030
  5. VICCILIN [Suspect]
     Route: 030
  6. CANDESARTAN CILEXETIL [Concomitant]
     Indication: HYPERTENSION
     Route: 048
  7. BUFFERIN [Concomitant]
     Indication: TRANSIENT ISCHAEMIC ATTACK
     Route: 048
  8. CIMETIDINE HCL [Concomitant]
     Indication: GASTRITIS
     Dosage: 1.0 (UNSPECIFIED)
     Route: 065
  9. P MAGEN [Concomitant]
     Indication: GASTRITIS
     Dosage: 1.5 (UNSPECIFIED)
     Route: 065

REACTIONS (3)
  - HYPONATRAEMIA [None]
  - INAPPROPRIATE ANTIDIURETIC HORMONE SECRETION [None]
  - VOMITING [None]
